FAERS Safety Report 17495497 (Version 1)
Quarter: 2020Q1

REPORT INFORMATION
  Report Type: Spontaneous
  Country: US (occurrence: US)
  Receive Date: 20200303
  Receipt Date: 20200303
  Transmission Date: 20200409
  Serious: Yes (Hospitalization)
  Sender: FDA-Public Use
  Company Number: None

PATIENT
  Age: 27 Year
  Sex: Female

DRUGS (2)
  1. HUMIRA [Suspect]
     Active Substance: ADALIMUMAB
     Dosage: Q 14 DAYS
     Route: 058
  2. NONE REPORTED [Concomitant]

REACTIONS (2)
  - Drug hypersensitivity [None]
  - Hypersensitivity [None]

NARRATIVE: CASE EVENT DATE: 20200302
